FAERS Safety Report 10216438 (Version 1)
Quarter: 2014Q2

REPORT INFORMATION
  Report Type: Spontaneous
  Country: US (occurrence: US)
  Receive Date: 20140604
  Receipt Date: 20140604
  Transmission Date: 20141212
  Serious: No
  Sender: FDA-Public Use
  Company Number: US-BAYER-2014-083187

PATIENT
  Age: 12 Year
  Sex: Female
  Weight: 56.69 kg

DRUGS (3)
  1. ALEVE CAPLET [Suspect]
     Indication: DYSMENORRHOEA
     Dosage: 2 DF, PRN
     Route: 048
     Dates: start: 201405
  2. ALEVE CAPLET [Suspect]
     Indication: DYSMENORRHOEA
     Dosage: 4 DF, IN 24 HOURS
     Route: 048
     Dates: start: 20140602, end: 20140602
  3. PHENERGAN [Concomitant]
     Indication: DYSMENORRHOEA

REACTIONS (1)
  - Extra dose administered [None]
